FAERS Safety Report 6053331-6 (Version None)
Quarter: 2009Q1

REPORT INFORMATION
  Report Type: 
  Country: None (occurrence: None)
  Receive Date: 20090127
  Receipt Date: 20090119
  Transmission Date: 20090719
  Serious: Yes (Other)
  Sender: FDA-Public Use
  Company Number: B0554521A

PATIENT
  Age: 80 Year
  Sex: Male

DRUGS (14)
  1. ZOPHREN [Suspect]
     Indication: PREMEDICATION
     Route: 042
     Dates: start: 20081107
  2. ZOPHREN [Suspect]
     Route: 048
     Dates: start: 20081101
  3. FLUOROURACIL [Suspect]
     Route: 042
     Dates: start: 20081107
  4. CAMPTOSAR [Suspect]
     Route: 042
     Dates: start: 20081107
  5. FOLINIC ACID [Concomitant]
     Route: 042
     Dates: start: 20081107
  6. SECTRAL [Concomitant]
     Dosage: 200MG PER DAY
  7. INIPOMP [Concomitant]
  8. ESOMEPRAZOLE [Concomitant]
     Route: 065
  9. IXPRIM [Concomitant]
     Indication: PAIN
     Dosage: 6UNIT PER DAY
     Route: 065
  10. COVERSYL [Concomitant]
     Dosage: 2MG PER DAY
  11. IMODIUM [Concomitant]
  12. MEDROL [Concomitant]
     Dosage: 16MG TWICE PER DAY
     Route: 048
     Dates: start: 20081107
  13. RADIOTHERAPY [Concomitant]
  14. SOLU-MEDROL [Concomitant]
     Indication: PREMEDICATION
     Dates: start: 20080926

REACTIONS (4)
  - ARRHYTHMIA [None]
  - SUPRAVENTRICULAR EXTRASYSTOLES [None]
  - VENTRICULAR EXTRASYSTOLES [None]
  - VENTRICULAR TACHYCARDIA [None]
